FAERS Safety Report 5682550-3 (Version None)
Quarter: 2008Q1

REPORT INFORMATION
  Report Type: 
  Country: None (occurrence: None)
  Receive Date: 20080327
  Receipt Date: 20080118
  Transmission Date: 20080703
  Serious: Yes (Hospitalization)
  Sender: FDA-Public Use
  Company Number: US-BRISTOL-MYERS SQUIBB COMPANY-14047039

PATIENT
  Age: 53 Year
  Sex: Male

DRUGS (4)
  1. SPRYCEL [Suspect]
     Indication: CHRONIC MYELOID LEUKAEMIA
  2. PRILOSEC [Concomitant]
  3. CLARITIN [Concomitant]
  4. ALLOPURINOL [Concomitant]

REACTIONS (1)
  - PLEURAL EFFUSION [None]
